FAERS Safety Report 6705154-X (Version None)
Quarter: 2010Q2

REPORT INFORMATION
  Report Type: 
  Country: None (occurrence: None)
  Receive Date: 20100430
  Receipt Date: 20091224
  Transmission Date: 20101027
  Serious: No
  Sender: FDA-Public Use
  Company Number: US-ASTRAZENECA-2009SE33517

PATIENT
  Sex: Female

DRUGS (5)
  1. NEXIUM [Suspect]
     Route: 048
  2. TRAMADOL HCL [Concomitant]
  3. SKELAXIN [Concomitant]
  4. ALENDRONATE [Concomitant]
  5. ENABLEX [Concomitant]

REACTIONS (2)
  - FEELING ABNORMAL [None]
  - NERVOUSNESS [None]
